FAERS Safety Report 6768593-7 (Version None)
Quarter: 2010Q2

REPORT INFORMATION
  Report Type: 
  Country: None (occurrence: None)
  Receive Date: 20100614
  Receipt Date: 20100608
  Transmission Date: 20101027
  Serious: Yes (Other)
  Sender: FDA-Public Use
  Company Number: US-PFIZER INC-2010066273

PATIENT
  Age: 39 Year
  Sex: Female

DRUGS (1)
  1. DEPO-PROVERA [Suspect]
     Indication: CONTRACEPTION
     Dosage: UNK
     Dates: start: 19930101

REACTIONS (6)
  - AMENORRHOEA [None]
  - HERPES VIRUS INFECTION [None]
  - HOT FLUSH [None]
  - INFERTILITY [None]
  - NIGHT SWEATS [None]
  - PREMATURE MENOPAUSE [None]
